FAERS Safety Report 22397546 (Version 1)
Quarter: 2023Q2

REPORT INFORMATION
  Report Type: Report from Study
  Country: US (occurrence: US)
  Receive Date: 20230602
  Receipt Date: 20230602
  Transmission Date: 20230722
  Serious: Yes (Hospitalization)
  Sender: FDA-Public Use
  Company Number: US-JNJFOC-20230571182

PATIENT
  Age: 78 Year
  Sex: Female
  Weight: 48.2 kg

DRUGS (3)
  1. ILOPROST [Suspect]
     Active Substance: ILOPROST
     Indication: Pulmonary hypertension
     Dosage: 6 TO 9 TIMES PER DAY
     Route: 055
  2. WARFARIN [Concomitant]
     Active Substance: WARFARIN
  3. AMBRISENTAN [Concomitant]
     Active Substance: AMBRISENTAN

REACTIONS (2)
  - Diarrhoea [Unknown]
  - Abdominal pain upper [Unknown]

NARRATIVE: CASE EVENT DATE: 20230502
